FAERS Safety Report 5045071-7 (Version None)
Quarter: 2006Q2

REPORT INFORMATION
  Report Type: 
  Country: None (occurrence: None)
  Receive Date: 20060627
  Receipt Date: 20060613
  Transmission Date: 20061013
  Serious: Yes (Hospitalization)
  Sender: FDA-Public Use
  Company Number: 200610241

PATIENT
  Age: 47 Year
  Sex: Female
  Weight: 119.2053 kg

DRUGS (2)
  1. CARIMUNE [Suspect]
     Indication: DERMATOMYOSITIS
     Dosage: IV
     Route: 042
     Dates: start: 20060401
  2. PANGLOBULIN [Suspect]

REACTIONS (6)
  - DEHYDRATION [None]
  - DIARRHOEA [None]
  - FATIGUE [None]
  - HYPONATRAEMIA [None]
  - HYPOVOLAEMIA [None]
  - WEIGHT DECREASED [None]
